FAERS Safety Report 8300544-6 (Version None)
Quarter: 2012Q1

REPORT INFORMATION
  Report Type: 
  Country: None (occurrence: None)
  Receive Date: 20120326
  Receipt Date: 20110627
  Transmission Date: 20120608
  Serious: Yes (Hospitalization)
  Sender: FDA-Public Use
  Company Number: PHHY2011US57094

PATIENT

DRUGS (1)
  1. TASIGNA [Suspect]
     Dosage: ORAL
     Route: 048

REACTIONS (1)
  - ABDOMINAL DISCOMFORT [None]
